FAERS Safety Report 8555346-2 (Version None)
Quarter: 2012Q3

REPORT INFORMATION
  Report Type: 
  Country: None (occurrence: None)
  Receive Date: 20120731
  Receipt Date: 20120409
  Transmission Date: 20120928
  Serious: No
  Sender: FDA-Public Use
  Company Number: US-ASTRAZENECA-2011SE37870

PATIENT
  Age: 59 Year
  Sex: Male
  Weight: 79.4 kg

DRUGS (23)
  1. SEROQUEL [Suspect]
     Route: 048
     Dates: start: 20060101, end: 20110601
  2. SEROQUEL [Suspect]
     Route: 048
     Dates: start: 20070101
  3. TETRACYCLINE [Concomitant]
  4. ATENOLOL [Concomitant]
  5. SINGULAIR [Concomitant]
  6. SYNTHROID [Concomitant]
  7. NEURONTIN [Concomitant]
  8. CYMBALTA [Concomitant]
  9. SEROQUEL [Suspect]
     Indication: ANXIOLYTIC THERAPY
     Route: 048
  10. SEROQUEL [Suspect]
     Route: 048
     Dates: start: 20060101, end: 20110601
  11. SEROQUEL [Suspect]
     Route: 048
     Dates: start: 20060101, end: 20110601
  12. SEROQUEL [Suspect]
     Route: 048
  13. TRICOR [Concomitant]
  14. SEROQUEL [Suspect]
     Route: 048
     Dates: start: 20070101
  15. SEROQUEL [Suspect]
     Route: 048
  16. NEXIUM [Concomitant]
  17. SEROQUEL [Suspect]
     Route: 048
  18. LORAZEPAM [Concomitant]
  19. METFORMIN HYDROCHLORIDE [Concomitant]
  20. QUINAPRIL HCL [Concomitant]
  21. SEROQUEL [Suspect]
     Indication: DEPRESSION
     Route: 048
  22. SEROQUEL [Suspect]
     Indication: SLEEP DISORDER
     Route: 048
  23. SEROQUEL [Suspect]
     Route: 048
     Dates: start: 20070101

REACTIONS (6)
  - DRUG PRESCRIBING ERROR [None]
  - INSOMNIA [None]
  - OFF LABEL USE [None]
  - FATIGUE [None]
  - MALAISE [None]
  - INTENTIONAL DRUG MISUSE [None]
